FAERS Safety Report 7739831-9 (Version None)
Quarter: 2011Q3

REPORT INFORMATION
  Report Type: 
  Country: None (occurrence: None)
  Receive Date: 20110909
  Receipt Date: 20110825
  Transmission Date: 20111222
  Serious: Yes (Other)
  Sender: FDA-Public Use
  Company Number: PHHY2011RS76516

PATIENT
  Age: 35 Year
  Sex: Male

DRUGS (4)
  1. ANTI-THYMOCYTE GLOBULIN NOS [Concomitant]
     Indication: STEM CELL TRANSPLANT
     Dosage: 3.75 MG/KG OF BODY MASS
  2. METHYLPREDNISOLONE [Concomitant]
     Indication: STEM CELL TRANSPLANT
     Dosage: 2 MG/KG, OF BODY MASS
  3. CYCLOPHOSPHAMIDE [Concomitant]
     Indication: STEM CELL TRANSPLANT
     Dosage: 50 MG/KG, OF BODY MASS
  4. CYCLOSPORINE [Suspect]
     Indication: STEM CELL TRANSPLANT
     Dosage: 5 MG/KG OF BODY MASS

REACTIONS (7)
  - HAEMORRHAGIC DISORDER [None]
  - GINGIVAL HYPERTROPHY [None]
  - PHARYNGEAL INFLAMMATION [None]
  - SKIN HAEMORRHAGE [None]
  - APLASIA [None]
  - RENAL FAILURE [None]
  - PYREXIA [None]
